FAERS Safety Report 8197056-X (Version None)
Quarter: 2012Q1

REPORT INFORMATION
  Report Type: 
  Country: None (occurrence: None)
  Receive Date: 20120307
  Receipt Date: 20120224
  Transmission Date: 20120608
  Serious: Yes (Disabling, Other)
  Sender: FDA-Public Use
  Company Number: 2011MA004439

PATIENT
  Sex: Female
  Weight: 139.7079 kg

DRUGS (32)
  1. HUMALOG [Concomitant]
  2. LYRICA [Concomitant]
  3. FUROSEMIDE [Concomitant]
  4. LIPITOR [Concomitant]
  5. LEVAQUIN [Concomitant]
  6. NEXIUM [Concomitant]
  7. GABAPENTIN [Concomitant]
  8. PROZAC [Concomitant]
  9. QUININE SULFATE [Concomitant]
  10. CIPROFLOXACIN [Concomitant]
  11. E-MYCIN [Concomitant]
  12. SYMLIN [Concomitant]
  13. NITROFURANTOIN [Concomitant]
  14. PREDNISONE [Concomitant]
  15. COMBIVENT [Concomitant]
  16. AMOXICILLIN [Concomitant]
  17. CARAFATE [Concomitant]
  18. HUMULIN N [Concomitant]
  19. FLUOXETINE [Concomitant]
  20. KLOR-CON [Concomitant]
  21. HYDROCODONE BITARTRATE [Concomitant]
  22. FENTANYL [Concomitant]
  23. AZITHROMYCIN [Concomitant]
  24. METOCLOPRAMIDE HYDROCHLORIDE [Suspect]
     Indication: DYSPEPSIA
     Dosage: 10 MG;BID
     Dates: start: 20061017, end: 20090801
  25. METOCLOPRAMIDE HYDROCHLORIDE [Suspect]
     Indication: GASTROOESOPHAGEAL REFLUX DISEASE
     Dosage: 10 MG;BID
     Dates: start: 20061017, end: 20090801
  26. HYDROCHLOROTHIAZIDE [Concomitant]
  27. FENTANYL [Concomitant]
  28. MORPHINE [Concomitant]
  29. ZOSTAVAX [Concomitant]
  30. ACIPHEX [Concomitant]
  31. BENAZEPRIL HYDROCHLORIDE [Concomitant]
  32. RANITIDINE [Concomitant]

REACTIONS (30)
  - ECONOMIC PROBLEM [None]
  - EMOTIONAL DISORDER [None]
  - DEPRESSION [None]
  - OVERWEIGHT [None]
  - DEPRESSED MOOD [None]
  - IMPAIRED GASTRIC EMPTYING [None]
  - BRADYKINESIA [None]
  - PERSONALITY CHANGE [None]
  - RESTLESS LEGS SYNDROME [None]
  - DROOLING [None]
  - APATHY [None]
  - ARTHRITIS [None]
  - HYPOREFLEXIA [None]
  - MASKED FACIES [None]
  - ACTIVITIES OF DAILY LIVING IMPAIRED [None]
  - AMNESIA [None]
  - ABNORMAL DREAMS [None]
  - EXERCISE LACK OF [None]
  - DISTURBANCE IN ATTENTION [None]
  - TARDIVE DYSKINESIA [None]
  - TREMOR [None]
  - INJURY [None]
  - GASTROOESOPHAGEAL REFLUX DISEASE [None]
  - PARKINSONISM [None]
  - MUSCULOSKELETAL STIFFNESS [None]
  - DYSPHONIA [None]
  - DYSGRAPHIA [None]
  - ANXIETY [None]
  - EXTRAPYRAMIDAL DISORDER [None]
  - DYSKINESIA [None]
